FAERS Safety Report 9883205 (Version 2)
Quarter: 2014Q1

REPORT INFORMATION
  Report Type: Spontaneous
  Country: JP (occurrence: JP)
  Receive Date: 20140208
  Receipt Date: 20140208
  Transmission Date: 20141002
  Serious: Yes (Death)
  Sender: FDA-Public Use
  Company Number: JP-AMGEN-JPNSP2014008392

PATIENT
  Sex: Female

DRUGS (1)
  1. ROMIPLATE [Suspect]
     Indication: LYMPHOMA
     Dosage: UNK
     Route: 058

REACTIONS (1)
  - Death [Fatal]
